FAERS Safety Report 21908750 (Version 1)
Quarter: 2023Q1

REPORT INFORMATION
  Report Type: Spontaneous
  Country: NL (occurrence: NL)
  Receive Date: 20230125
  Receipt Date: 20230125
  Transmission Date: 20230417
  Serious: Yes (Other)
  Sender: FDA-Public Use
  Company Number: None

PATIENT
  Sex: Male

DRUGS (6)
  1. TAMSULOSIN HYDROCHLORIDE [Suspect]
     Active Substance: TAMSULOSIN HYDROCHLORIDE
     Indication: Benign prostatic hyperplasia
     Dosage: .4 MILLIGRAM DAILY; 1X DAILY 1, TAMSULOSINE CAPSULE MGA 0,4MG / BRAND NAME NOT SPECIFIED
     Dates: start: 20221231, end: 20221231
  2. PANTOPRAZOLE [Concomitant]
     Active Substance: PANTOPRAZOLE
     Indication: Product used for unknown indication
     Dosage: PANTOPRAZOLE TABLET MSR 20MG / BRAND NAME NOT SPECIFIED
  3. PERINDOPRIL (ERBUMINE) [Concomitant]
     Indication: Product used for unknown indication
     Dosage: BRAND NAME NOT SPECIFIED
  4. METOPROLOL TARTRAAT [Concomitant]
     Indication: Product used for unknown indication
     Dosage: BRAND NAME NOT SPECIFIED
  5. CARBASPIRIN CALCIUM [Concomitant]
     Active Substance: CARBASPIRIN CALCIUM
     Indication: Product used for unknown indication
     Dosage: BRAND NAME NOT SPECIFIED
  6. ATORVASTATIN [Concomitant]
     Active Substance: ATORVASTATIN
     Indication: Product used for unknown indication
     Dosage: BRAND NAME NOT SPECIFIED

REACTIONS (4)
  - Syncope [Recovered/Resolved]
  - Dizziness [Recovered/Resolved]
  - Constipation [Recovered/Resolved]
  - Vomiting [Recovered/Resolved]
